FAERS Safety Report 7471777-6 (Version None)
Quarter: 2011Q2

REPORT INFORMATION
  Report Type: 
  Country: None (occurrence: None)
  Receive Date: 20110511
  Receipt Date: 20100426
  Transmission Date: 20111010
  Serious: No
  Sender: FDA-Public Use
  Company Number: A0856741A

PATIENT
  Age: 68 Year
  Sex: Female

DRUGS (3)
  1. LISINOPRIL [Concomitant]
  2. XELODA [Concomitant]
  3. TYKERB [Suspect]
     Indication: BREAST CANCER
     Dosage: 5TAB PER DAY
     Route: 048
     Dates: start: 20100419, end: 20100422

REACTIONS (8)
  - ERYTHEMA [None]
  - SKIN EXFOLIATION [None]
  - MOUTH ULCERATION [None]
  - PAIN IN EXTREMITY [None]
  - RASH [None]
  - SKIN BURNING SENSATION [None]
  - DIARRHOEA [None]
  - ABDOMINAL PAIN UPPER [None]
